FAERS Safety Report 10417307 (Version 2)
Quarter: 2014Q3

REPORT INFORMATION
  Report Type: Spontaneous
  Country: US (occurrence: US)
  Receive Date: 20140828
  Receipt Date: 20140828
  Transmission Date: 20150326
  Serious: Yes (Hospitalization, Disabling, Other)
  Sender: FDA-Public Use
  Company Number: US-009507513-2008-176508-NL

PATIENT
  Sex: Female
  Weight: 59.88 kg

DRUGS (1)
  1. NUVARING [Suspect]
     Active Substance: ETHINYL ESTRADIOL\ETONOGESTREL
     Indication: CONTRACEPTION
     Dosage: CONTINUING: NO
     Route: 067
     Dates: start: 200710, end: 200803

REACTIONS (3)
  - Deep vein thrombosis [Recovered/Resolved]
  - Hypercoagulation [Unknown]
  - May-Thurner syndrome [Unknown]

NARRATIVE: CASE EVENT DATE: 20080329
